FAERS Safety Report 6221815-3 (Version None)
Quarter: 2009Q2

REPORT INFORMATION
  Report Type: 
  Country: None (occurrence: None)
  Receive Date: 20090608
  Receipt Date: 20090526
  Transmission Date: 20091009
  Serious: Yes (Death, Hospitalization)
  Sender: FDA-Public Use
  Company Number: OXER20090002

PATIENT
  Age: 31 Year
  Sex: Male

DRUGS (3)
  1. OXYCODONE HCL [Suspect]
     Dosage: 60 TABLETS, ONCE ORAL
     Route: 048
     Dates: start: 20070101, end: 20070101
  2. OXYCODONE HCL [Suspect]
     Dosage: 180 TABLETS, ONCE, ORAL
     Route: 048
     Dates: start: 20070101, end: 20070101
  3. PREGABALIN 150 MG [Suspect]
     Dosage: 100 TABLETS, ONCE, ORAL
     Route: 048
     Dates: start: 20070101, end: 20070101

REACTIONS (15)
  - ANOXIC ENCEPHALOPATHY [None]
  - BLOOD CREATINE PHOSPHOKINASE INCREASED [None]
  - CARDIO-RESPIRATORY ARREST [None]
  - CEREBRAL INFARCTION [None]
  - COMA [None]
  - COMPLETED SUICIDE [None]
  - DRUG LEVEL BELOW THERAPEUTIC [None]
  - DRUG SCREEN POSITIVE [None]
  - HEART RATE INCREASED [None]
  - HYPOTENSION [None]
  - METABOLIC ACIDOSIS [None]
  - NO THERAPEUTIC RESPONSE [None]
  - OVERDOSE [None]
  - PNEUMONIA ASPIRATION [None]
  - RENAL FAILURE [None]
